FAERS Safety Report 6739061-3 (Version None)
Quarter: 2010Q2

REPORT INFORMATION
  Report Type: 
  Country: None (occurrence: None)
  Receive Date: 20100524
  Receipt Date: 20100512
  Transmission Date: 20101027
  Serious: Yes (Life-Threatening)
  Sender: FDA-Public Use
  Company Number: US-ELI_LILLY_AND_COMPANY-US201005003399

PATIENT
  Age: 92 Year
  Sex: Female

DRUGS (3)
  1. ZYPREXA [Suspect]
     Indication: ABNORMAL BEHAVIOUR
  2. TYLENOL (CAPLET) [Concomitant]
  3. THYROID THERAPY [Concomitant]

REACTIONS (4)
  - DYSPHAGIA [None]
  - INTENTIONAL DRUG MISUSE [None]
  - OFF LABEL USE [None]
  - PNEUMONIA [None]
